FAERS Safety Report 10168910 (Version 1)
Quarter: 2014Q2

REPORT INFORMATION
  Report Type: Spontaneous
  Country: FR (occurrence: FR)
  Receive Date: 20140513
  Receipt Date: 20140513
  Transmission Date: 20141212
  Serious: Yes (Hospitalization)
  Sender: FDA-Public Use
  Company Number: FR-SA-2014SA056517

PATIENT
  Age: 80 Year
  Sex: Male

DRUGS (12)
  1. PLAVIX [Suspect]
     Indication: PRODUCT USED FOR UNKNOWN INDICATION
     Route: 048
     Dates: start: 20131010, end: 201402
  2. KARDEGIC [Suspect]
     Indication: PRODUCT USED FOR UNKNOWN INDICATION
     Route: 048
     Dates: start: 20131210
  3. PREVISCAN [Suspect]
     Indication: PRODUCT USED FOR UNKNOWN INDICATION
     Dosage: DOSE: HALF ON WEDNESDAY AND 1/4 ON THURSDAY
     Route: 048
     Dates: end: 20131206
  4. PREVISCAN [Suspect]
     Indication: PRODUCT USED FOR UNKNOWN INDICATION
     Route: 065
     Dates: start: 20131220
  5. LASILIX SPECIAL [Concomitant]
     Dosage: 500 MG 3/4 IN MORNING AND 1/4 IN EVENING
     Route: 048
  6. BISOPROLOL [Concomitant]
     Dosage: STRENGTH: 1.25 MG, 1 TABLET IN MORNING ET 1 CP (TABLET) IN THE EVENING
     Route: 048
  7. ALDACTONE [Concomitant]
     Dosage: STRENGTH: 25 MG, 1 TABLET IN MORNING
  8. TRIATEC FAIBLE [Concomitant]
     Dosage: STRENGTH: 1.25 MG, 1 TABLET IN MORNING AND 1 TABLET IN EVENING
     Route: 048
  9. SIMVASTATIN [Concomitant]
     Dosage: STRENGTH: 20 MG, 1 TABLET IN EVENING
     Route: 048
  10. LEVOTHYROX [Concomitant]
     Dosage: GRADUAL 1 TABLET IN THE MORNING
     Route: 048
  11. LEVEMIR [Concomitant]
     Dosage: 30 IU IN THE MORNING AND 12 IU IN THE EVENING
     Route: 058
  12. NOVORAPID [Concomitant]
     Dosage: 6 IU IN THE MORNING AND 6 IU IN THE EVENING
     Route: 058

REACTIONS (4)
  - Epistaxis [Recovered/Resolved]
  - Haematoma [Recovered/Resolved]
  - Wound haemorrhage [Recovered/Resolved]
  - Overdose [Unknown]
